FAERS Safety Report 14020188 (Version 3)
Quarter: 2017Q4

REPORT INFORMATION
  Report Type: Report from Study
  Country: US (occurrence: US)
  Receive Date: 20170928
  Receipt Date: 20171106
  Transmission Date: 20180321
  Serious: Yes (Death, Hospitalization, Other)
  Sender: FDA-Public Use
  Company Number: US-PFIZER INC-2017375495

PATIENT
  Age: 43 Year
  Sex: Female

DRUGS (3)
  1. IBRANCE [Suspect]
     Active Substance: PALBOCICLIB
     Dosage: 125 MG, 1X/DAY
     Route: 048
     Dates: start: 20170913, end: 20170923
  2. IBRANCE [Suspect]
     Active Substance: PALBOCICLIB
     Dosage: 75 MG, 1X/DAY
     Route: 048
     Dates: start: 20170928, end: 20171020
  3. IBRANCE [Suspect]
     Active Substance: PALBOCICLIB
     Indication: BREAST CANCER
     Dosage: 125 MG, 1X/DAY
     Route: 048
     Dates: start: 20170825, end: 20170829

REACTIONS (12)
  - Death [Fatal]
  - Leukopenia [Recovering/Resolving]
  - Anaemia [Recovering/Resolving]
  - Malaise [Unknown]
  - Nausea [Unknown]
  - Pain [Recovering/Resolving]
  - Back pain [Unknown]
  - Abdominal distension [Unknown]
  - Abdominal discomfort [Unknown]
  - Fatigue [Unknown]
  - Diarrhoea [Unknown]
  - Headache [Unknown]

NARRATIVE: CASE EVENT DATE: 2017
